FAERS Safety Report 4910775-0 (Version None)
Quarter: 2006Q1

REPORT INFORMATION
  Report Type: 
  Country: None (occurrence: None)
  Receive Date: 20060214
  Receipt Date: 20060202
  Transmission Date: 20060701
  Serious: Yes (Death)
  Sender: FDA-Public Use
  Company Number: GB-JNJFOC-20060201105

PATIENT
  Age: 59 Year
  Sex: Female
  Weight: 36.5 kg

DRUGS (8)
  1. RISPERDAL CONSTA [Suspect]
     Indication: DELUSION
     Route: 030
  2. CYMBALTA [Suspect]
     Indication: DEPRESSION
     Route: 048
  3. MAXITROL [Concomitant]
     Route: 047
  4. MAXITROL [Concomitant]
     Route: 047
  5. MAXITROL [Concomitant]
     Route: 047
  6. DICLOFENAC [Concomitant]
     Indication: ORAL PAIN
     Route: 048
  7. LORAZEPAM [Concomitant]
     Indication: AGITATION
     Route: 048
  8. BENZYDAMINE [Concomitant]
     Indication: ORAL PAIN
     Route: 061

REACTIONS (1)
  - BRONCHOPNEUMONIA [None]
